FAERS Safety Report 17201460 (Version 1)
Quarter: 2019Q4

REPORT INFORMATION
  Report Type: Spontaneous
  Country: SK (occurrence: SK)
  Receive Date: 20191226
  Receipt Date: 20191226
  Transmission Date: 20200122
  Serious: Yes (Hospitalization, Other)
  Sender: FDA-Public Use
  Company Number: SK-PFIZER INC-2019545738

PATIENT
  Age: 72 Year
  Sex: Female
  Weight: 70 kg

DRUGS (7)
  1. METAMIZOLE [Interacting]
     Active Substance: METAMIZOLE
     Indication: ANALGESIC THERAPY
     Dosage: 2500 MG, 3X/DAY
  2. FENPIVERINIUM [Concomitant]
     Indication: SUBILEUS
     Dosage: 0.1 MG, 3X/DAY
  3. THIETHYLPERAZINE [Concomitant]
     Active Substance: THIETHYLPERAZINE
     Indication: SUBILEUS
     Dosage: 6.5 MG, 3X/DAY
  4. PITOFENONE [Concomitant]
     Active Substance: PITOFENONE
     Indication: SUBILEUS
     Dosage: 10 MG, 3X/DAY
  5. FILGRASTIM [Interacting]
     Active Substance: FILGRASTIM
     Indication: AGRANULOCYTOSIS
  6. TRIMECAINE [Concomitant]
     Active Substance: TRIMECAINE
     Indication: SUBILEUS
     Dosage: 10 MG, 3X/DAY (3X10 MG)
  7. FILGRASTIM [Suspect]
     Active Substance: FILGRASTIM
     Indication: PANCYTOPENIA
     Dosage: 48 MU SC, 1X/DAY (THREE DOSES)
     Route: 058

REACTIONS (1)
  - Drug interaction [Recovered/Resolved]
